FAERS Safety Report 16762137 (Version 2)
Quarter: 2019Q4

REPORT INFORMATION
  Report Type: Spontaneous
  Country: AU (occurrence: AU)
  Receive Date: 20190830
  Receipt Date: 20191002
  Transmission Date: 20200122
  Serious: Yes (Other)
  Sender: FDA-Public Use
  Company Number: PHHY2019AU202215

PATIENT

DRUGS (1)
  1. COSENTYX [Suspect]
     Active Substance: SECUKINUMAB
     Indication: ANKYLOSING SPONDYLITIS
     Dosage: UNK
     Route: 065

REACTIONS (5)
  - Inflammatory bowel disease [Unknown]
  - Haematochezia [Unknown]
  - Haemorrhoids [Unknown]
  - Mouth ulceration [Unknown]
  - Gastroenteritis [Unknown]
